FAERS Safety Report 8800667 (Version 1)
Quarter: 2012Q4

REPORT INFORMATION
  Report Type: 
  Country: US (occurrence: US)
  Receive Date: 20120921
  Receipt Date: 20120921
  Transmission Date: 20130627
  Serious: Yes (Other)
  Sender: FDA-Public Use
  Company Number: US-ROCHE-1097819

PATIENT
  Sex: Male

DRUGS (4)
  1. AVASTIN [Suspect]
     Indication: RECTOSIGMOID CANCER
     Route: 065
     Dates: start: 20040907
  2. AVASTIN [Suspect]
     Route: 065
     Dates: start: 20040915
  3. AVASTIN [Suspect]
     Route: 065
     Dates: start: 20040929
  4. AVASTIN [Suspect]
     Route: 065
     Dates: start: 20041013, end: 20041013

REACTIONS (1)
  - Disease progression [Unknown]
